FAERS Safety Report 10491151 (Version 1)
Quarter: 2014Q4

REPORT INFORMATION
  Report Type: Spontaneous
  Country: US (occurrence: US)
  Receive Date: 20141002
  Receipt Date: 20141002
  Transmission Date: 20150528
  Serious: No
  Sender: FDA-Public Use
  Company Number: US-GLAXOSMITHKLINE-A1048254A

PATIENT
  Sex: Female

DRUGS (4)
  1. SERTRALINE HCL [Concomitant]
     Active Substance: SERTRALINE HYDROCHLORIDE
  2. ALLERGY MEDICATION [Concomitant]
     Active Substance: DIPHENHYDRAMINE HYDROCHLORIDE
  3. ADVAIR HFA [Suspect]
     Active Substance: FLUTICASONE PROPIONATE\SALMETEROL XINAFOATE
     Indication: BRONCHITIS CHRONIC
     Dosage: 1PUFF AS REQUIRED
     Route: 055
     Dates: start: 2008
  4. ACID REFLUX MED. [Concomitant]

REACTIONS (4)
  - Drug ineffective [Unknown]
  - Muscle spasms [Unknown]
  - Dyspnoea [Not Recovered/Not Resolved]
  - Weight decreased [Unknown]
